FAERS Safety Report 14953308 (Version 1)
Quarter: 2018Q2

REPORT INFORMATION
  Report Type: Spontaneous
  Country: DE (occurrence: DE)
  Receive Date: 20180530
  Receipt Date: 20180530
  Transmission Date: 20180711
  Serious: Yes (Other)
  Sender: FDA-Public Use
  Company Number: DE-NAPPMUNDI-GBR-2018-0056167

PATIENT
  Sex: Female

DRUGS (16)
  1. BACLOFEN. [Suspect]
     Active Substance: BACLOFEN
     Indication: TREMOR
     Dosage: 20 MG, UNK (1 IN THE MORNING AND 2 AT BEDTIME)
     Route: 048
     Dates: start: 2004
  2. ESZOPICLONE. [Concomitant]
     Active Substance: ESZOPICLONE
     Indication: SLEEP DISORDER
     Dosage: 1 DF, DAILY (HS)
     Route: 048
  3. LIDOCAINE. [Concomitant]
     Active Substance: LIDOCAINE
     Indication: PRODUCT USED FOR UNKNOWN INDICATION
     Dosage: UNK
     Dates: start: 2000
  4. LAMOTRIGINE. [Suspect]
     Active Substance: LAMOTRIGINE
     Indication: ANXIETY
     Dosage: 25 MG, TID
     Route: 048
     Dates: end: 2017
  5. GABAPENTIN. [Suspect]
     Active Substance: GABAPENTIN
     Indication: FIBROMYALGIA
     Dosage: 2 TABLET, QID (STRENGHT 600MG)
     Route: 048
     Dates: start: 2004
  6. DULOXETINE. [Concomitant]
     Active Substance: DULOXETINE
     Indication: DEPRESSION
     Dosage: 2 DF, DAILY
     Route: 048
  7. HYDROCODONE [Concomitant]
     Active Substance: HYDROCODONE
     Dosage: UNK, TID
  8. ACETAMINOPHEN W/HYDROCODONE BITARTRATE [Concomitant]
     Active Substance: ACETAMINOPHEN\HYDROCODONE BITARTRATE
     Indication: PAIN
     Dosage: 1 TABLET, UNK (EVERY 4-6 HOURS)
     Route: 048
  9. QUETIAPINE FUMARATE. [Concomitant]
     Active Substance: QUETIAPINE FUMARATE
     Indication: ANXIETY
     Dosage: 1 DF, DAILY (HS)
     Route: 048
  10. SKELAXIN [Suspect]
     Active Substance: METAXALONE
     Indication: COMPLEX REGIONAL PAIN SYNDROME
     Dosage: UNK
     Route: 065
     Dates: start: 2004, end: 2015
  11. FLUOXETINE [Concomitant]
     Active Substance: FLUOXETINE HYDROCHLORIDE
     Indication: DEPRESSION
     Dosage: 20 MG, DAILY
     Route: 048
  12. LEVOTHYROXINE. [Concomitant]
     Active Substance: LEVOTHYROXINE
     Dosage: 1 DF, DAILY
     Route: 048
  13. AMLODIPINE [Concomitant]
     Active Substance: AMLODIPINE BESYLATE
     Dosage: UNK (5 MG ONCE IN THE MORNING AND 2 AT NIGHT)
     Route: 048
  14. OXYCODONE HYDROCHLORIDE. [Suspect]
     Active Substance: OXYCODONE HYDROCHLORIDE
     Indication: PAIN
     Dosage: UNK
     Route: 065
  15. ZETIA [Concomitant]
     Active Substance: EZETIMIBE
     Dosage: UNK
  16. ROSUVASTATIN CALCIUM. [Concomitant]
     Active Substance: ROSUVASTATIN CALCIUM
     Dosage: 1 DF, DAILY
     Route: 048
     Dates: start: 2017

REACTIONS (8)
  - Concussion [Recovered/Resolved]
  - Tooth disorder [Unknown]
  - Foot fracture [Recovered/Resolved]
  - Tremor [Unknown]
  - Lower limb fracture [Recovered/Resolved]
  - Fall [Recovered/Resolved]
  - Herpes zoster [Unknown]
  - Ankle fracture [Recovered/Resolved]

NARRATIVE: CASE EVENT DATE: 20150619
